FAERS Safety Report 20848766 (Version 1)
Quarter: 2022Q2

REPORT INFORMATION
  Report Type: Spontaneous
  Country: JP (occurrence: JP)
  Receive Date: 20220519
  Receipt Date: 20220519
  Transmission Date: 20220721
  Serious: Yes (Hospitalization)
  Sender: FDA-Public Use
  Company Number: JP-LUPIN PHARMACEUTICALS INC.-2022-07167

PATIENT
  Age: 65 Year
  Sex: Male
  Weight: 49.1 kg

DRUGS (13)
  1. MORPHINE [Interacting]
     Active Substance: MORPHINE
     Indication: Cancer pain
     Dosage: 5 MG (THE MORPHINE EQUIVALENT TOTAL DAILY DOSE WAS 52.5MG)
     Route: 048
  2. MORPHINE [Interacting]
     Active Substance: MORPHINE
     Dosage: 5 MG (5MG TIMES 5; THE MORPHINE EQUIVALENT TOTAL DAILY DOSE INCREASED TO 55.0MG)
     Route: 048
  3. MORPHINE [Interacting]
     Active Substance: MORPHINE
     Dosage: 5 MG (THE NUMBER OF MORPHINE DOSE WAS INCREASED TO 6)
     Route: 048
  4. MORPHINE [Interacting]
     Active Substance: MORPHINE
     Dosage: 10 MG, QD (THE MORPHINE EQUIVALENT TOTAL DAILY DOSE WAS 95MG)
     Route: 048
  5. MORPHINE [Interacting]
     Active Substance: MORPHINE
     Dosage: UNK (THE NUMBER OF MORPHINE DOSE WAS THREE)
     Route: 048
  6. MORPHINE [Interacting]
     Active Substance: MORPHINE
     Dosage: UNK (THE NUMBER OF MORPHINE DOSE WAS INCREASED TO FIVE)
     Route: 048
  7. MORPHINE [Interacting]
     Active Substance: MORPHINE
     Dosage: 15 MG
     Route: 048
  8. FENTANYL [Interacting]
     Active Substance: FENTANYL
     Indication: Cancer pain
     Dosage: 1 MG (THE MORPHINE EQUIVALENT TOTAL DAILY DOSE WAS 52.5MG)
     Route: 062
  9. FENTANYL [Interacting]
     Active Substance: FENTANYL
     Dosage: 1.5 MG, QD
     Route: 062
  10. FENTANYL [Interacting]
     Active Substance: FENTANYL
     Dosage: 2 MG
     Route: 062
  11. NIVOLUMAB [Interacting]
     Active Substance: NIVOLUMAB
     Indication: Head and neck cancer
     Dosage: 240 MG, QD (EVERY 2 WEEKS)
     Route: 065
  12. LOXOPROFEN [Concomitant]
     Active Substance: LOXOPROFEN
     Indication: Cancer pain
     Dosage: 180 MG, QD
     Route: 065
  13. ACETAMINOPHEN [Concomitant]
     Active Substance: ACETAMINOPHEN
     Indication: Cancer pain
     Dosage: 1500 MG, QD
     Route: 065

REACTIONS (2)
  - Therapeutic product effect decreased [Unknown]
  - Drug interaction [Unknown]
